FAERS Safety Report 5210901-2 (Version None)
Quarter: 2007Q1

REPORT INFORMATION
  Report Type: 
  Country: None (occurrence: None)
  Receive Date: 20070117
  Receipt Date: 20070108
  Transmission Date: 20070707
  Serious: Yes (Hospitalization)
  Sender: FDA-Public Use
  Company Number: US-ROXANE LABORATORIES, INC-2007-BP-00170IM

PATIENT
  Sex: Female

DRUGS (17)
  1. INTERFERON GAMMA - 1B SOLUTION [Suspect]
     Indication: IDIOPATHIC PULMONARY FIBROSIS
     Route: 058
     Dates: start: 20041008
  2. PREDNISONE [Suspect]
     Route: 048
     Dates: start: 20061206, end: 20061220
  3. HYDROCODONE [Concomitant]
     Dates: start: 20040810
  4. IBUPROFEN [Concomitant]
     Route: 048
     Dates: start: 20041008
  5. ASCORBIC ACID [Concomitant]
     Route: 048
     Dates: start: 19840101
  6. CALCIUM [Concomitant]
     Route: 048
     Dates: start: 19940101
  7. NEXIUM [Concomitant]
     Route: 048
     Dates: start: 20040101
  8. ATORVASTATIN CALCIUM [Concomitant]
     Route: 048
     Dates: start: 20030126
  9. HYDROCHLOROTHIAZIDE [Concomitant]
     Route: 048
     Dates: start: 20030126
  10. VITAMIN CAP [Concomitant]
     Route: 048
     Dates: start: 20040101
  11. ADVAIR DISKUS 100/50 [Concomitant]
     Route: 055
     Dates: start: 20040101
  12. ZOLPIDEM TARTRATE [Concomitant]
     Route: 048
     Dates: start: 20051016
  13. VAGIFEM [Concomitant]
     Dates: start: 20051222
  14. CLARITIN [Concomitant]
     Route: 048
     Dates: start: 20041201
  15. DETROL LA [Concomitant]
     Route: 048
     Dates: start: 20060127
  16. NIASPAN [Concomitant]
     Route: 048
     Dates: start: 20060801
  17. ASPIRIN [Concomitant]
     Route: 048
     Dates: start: 20060821

REACTIONS (1)
  - PNEUMONIA [None]
